FAERS Safety Report 9474738 (Version 2)
Quarter: 2014Q1

REPORT INFORMATION
  Report Type: Spontaneous
  Country: US (occurrence: US)
  Receive Date: 20130823
  Receipt Date: 20140224
  Transmission Date: 20141002
  Serious: Yes (Hospitalization)
  Sender: FDA-Public Use
  Company Number: US-B.I. PHARMACEUTICALS,INC./RIDGEFIELD-2013-BI-26056BP

PATIENT
  Age: 80 Year
  Sex: Female
  Weight: 54.43 kg

DRUGS (5)
  1. PRADAXA [Suspect]
     Indication: ATRIAL FIBRILLATION
     Dosage: 300 MG
     Route: 048
     Dates: start: 20121012, end: 20121120
  2. ASPIRIN [Concomitant]
     Dosage: 81 MG
     Route: 048
  3. LOTRISONE CREAM [Concomitant]
     Route: 061
  4. LANOXIN [Concomitant]
     Dosage: 125 MCG
     Route: 048
  5. NASONEX [Concomitant]
     Route: 065

REACTIONS (3)
  - Gastrointestinal haemorrhage [Unknown]
  - Haemorrhagic anaemia [Unknown]
  - Coagulopathy [Unknown]
